FAERS Safety Report 23155051 (Version 2)
Quarter: 2024Q1

REPORT INFORMATION
  Report Type: Report from Study
  Country: US (occurrence: US)
  Receive Date: 20231107
  Receipt Date: 20240108
  Transmission Date: 20240410
  Serious: Yes (Other)
  Sender: FDA-Public Use
  Company Number: US-002147023-NVSC2023US235589

PATIENT
  Sex: Female

DRUGS (1)
  1. KESIMPTA [Suspect]
     Active Substance: OFATUMUMAB
     Indication: Multiple sclerosis
     Dosage: UNK, UNKNOWN
     Route: 065

REACTIONS (10)
  - Multiple sclerosis [Unknown]
  - Hypoaesthesia [Unknown]
  - Pain in extremity [Unknown]
  - Memory impairment [Unknown]
  - Anal incontinence [Unknown]
  - Neck pain [Unknown]
  - Gait disturbance [Unknown]
  - Rash [Unknown]
  - Fatigue [Unknown]
  - Drug ineffective [Unknown]
